APPROVED DRUG PRODUCT: GLYCOPYRROLATE
Active Ingredient: GLYCOPYRROLATE
Strength: 2MG
Dosage Form/Route: TABLET;ORAL
Application: A212696 | Product #002 | TE Code: AA
Applicant: QUAGEN PHARMACEUTICALS LLC
Approved: Jul 10, 2024 | RLD: No | RS: No | Type: RX